FAERS Safety Report 9785869 (Version 2)
Quarter: 2014Q1

REPORT INFORMATION
  Report Type: Spontaneous
  Country: CA (occurrence: None)
  Receive Date: 20131224
  Receipt Date: 20140311
  Transmission Date: 20141002
  Serious: Yes (Hospitalization)
  Sender: FDA-Public Use
  Company Number: CA-012189

PATIENT
  Age: 77 Year
  Sex: Male

DRUGS (4)
  1. FIRMAGON [Suspect]
     Indication: PROSTATE CANCER
     Dosage: 1X/MONTH
     Route: 058
     Dates: start: 20130401
  2. NATURAL VITAMIN D [Concomitant]
  3. CITALOPRAM [Suspect]
  4. COUMADIN [Concomitant]

REACTIONS (14)
  - Bone pain [None]
  - Osteoporosis [None]
  - Lung neoplasm malignant [None]
  - Blood pressure increased [None]
  - Blood cholesterol increased [None]
  - Fatigue [None]
  - Pain [None]
  - Dizziness [None]
  - Hot flush [None]
  - Constipation [None]
  - Diarrhoea [None]
  - Fall [None]
  - Rib fracture [None]
  - Metastases to central nervous system [None]
